FAERS Safety Report 12198830 (Version 1)
Quarter: 2016Q1

REPORT INFORMATION
  Report Type: Spontaneous
  Country: DE (occurrence: DE)
  Receive Date: 20160322
  Receipt Date: 20160322
  Transmission Date: 20160526
  Serious: Yes (Other)
  Sender: FDA-Public Use
  Company Number: DE-DRREDDYS-GER/GER/16/0077955

PATIENT
  Sex: Male
  Weight: 3.25 kg

DRUGS (1)
  1. LAMOTRIGINE. [Suspect]
     Active Substance: LAMOTRIGINE
     Indication: EPILEPSY
     Route: 064

REACTIONS (3)
  - Hyperbilirubinaemia neonatal [Recovered/Resolved]
  - Jaundice [Recovering/Resolving]
  - Exposure during pregnancy [Unknown]
